FAERS Safety Report 13013993 (Version 1)
Quarter: 2016Q4

REPORT INFORMATION
  Report Type: Spontaneous
  Country: US (occurrence: US)
  Receive Date: 20161209
  Receipt Date: 20161209
  Transmission Date: 20170207
  Serious: No
  Sender: FDA-Public Use
  Company Number: US-ENDO PHARMACEUTICALS INC.-2016-003682

PATIENT
  Sex: Male

DRUGS (3)
  1. SOTALOL HYDROCHLORIDE TABLETS 80MG [Suspect]
     Active Substance: SOTALOL HYDROCHLORIDE
     Route: 065
  2. SOTALOL HYDROCHLORIDE TABLETS 80MG [Suspect]
     Active Substance: SOTALOL HYDROCHLORIDE
     Route: 065
  3. SOTALOL HYDROCHLORIDE TABLETS 80MG [Suspect]
     Active Substance: SOTALOL HYDROCHLORIDE
     Indication: ARRHYTHMIA
     Route: 065

REACTIONS (2)
  - Heart rate increased [Unknown]
  - Product physical issue [Unknown]
